FAERS Safety Report 8785757 (Version 3)
Quarter: 2012Q4

REPORT INFORMATION
  Report Type: 
  Country: US (occurrence: US)
  Receive Date: 20120914
  Receipt Date: 20120921
  Transmission Date: 20130627
  Serious: Yes (Death, Hospitalization)
  Sender: FDA-Public Use
  Company Number: US-GLAXOSMITHKLINE-A0985416A

PATIENT
  Age: 57 Year
  Sex: Female

DRUGS (1)
  1. FLOLAN [Suspect]
     Indication: SCLERODERMA
     Dosage: 18NGKM Continuous
     Route: 042
     Dates: start: 20120313

REACTIONS (5)
  - Pericardial effusion [Unknown]
  - Coma [Unknown]
  - Cardiac arrest [Unknown]
  - Death [Fatal]
  - Headache [Unknown]
